FAERS Safety Report 23694843 (Version 4)
Quarter: 2025Q1

REPORT INFORMATION
  Report Type: Spontaneous
  Country: US (occurrence: US)
  Receive Date: 20240402
  Receipt Date: 20250125
  Transmission Date: 20250409
  Serious: Yes (Disabling, Other)
  Sender: AMGEN
  Company Number: US-HORIZON THERAPEUTICS-HZN-2024-003639

PATIENT
  Age: 51 Year
  Sex: Male
  Weight: 76 kg

DRUGS (46)
  1. TEPEZZA [Suspect]
     Active Substance: TEPROTUMUMAB-TRBW
     Indication: Endocrine ophthalmopathy
     Route: 042
     Dates: start: 20220325
  2. TEPEZZA [Suspect]
     Active Substance: TEPROTUMUMAB-TRBW
     Indication: Graves^ disease
     Route: 042
     Dates: start: 20220415
  3. TEPEZZA [Suspect]
     Active Substance: TEPROTUMUMAB-TRBW
     Route: 042
     Dates: start: 20220506
  4. TEPEZZA [Suspect]
     Active Substance: TEPROTUMUMAB-TRBW
     Route: 042
     Dates: start: 20220527
  5. TEPEZZA [Suspect]
     Active Substance: TEPROTUMUMAB-TRBW
     Route: 042
     Dates: start: 20220617
  6. TEPEZZA [Suspect]
     Active Substance: TEPROTUMUMAB-TRBW
     Route: 042
     Dates: start: 20220708
  7. TEPEZZA [Suspect]
     Active Substance: TEPROTUMUMAB-TRBW
     Route: 042
     Dates: start: 20220729, end: 20220729
  8. TEPEZZA [Suspect]
     Active Substance: TEPROTUMUMAB-TRBW
     Route: 042
     Dates: start: 20220819
  9. PREDNISONE [Suspect]
     Active Substance: PREDNISONE
     Indication: Product used for unknown indication
     Dosage: 40 MILLIGRAM, QD, (4 TABLETS DAILY OF 10 MILLIGRAM)
     Route: 048
     Dates: start: 2014
  10. PREDNISONE [Suspect]
     Active Substance: PREDNISONE
     Dosage: 40 MILLIGRAM, QD, (4 TABLETS DAILY OF 10 MILLIGRAM)
     Route: 048
     Dates: start: 20150202
  11. PREDNISONE [Suspect]
     Active Substance: PREDNISONE
     Dosage: 3 1/2 TABLETS, QD
     Route: 048
  12. LISINOPRIL [Concomitant]
     Active Substance: LISINOPRIL
     Dosage: 10 MILLIGRAM, QD
     Route: 048
  13. SYNJARDY [Concomitant]
     Active Substance: EMPAGLIFLOZIN\METFORMIN HYDROCHLORIDE
     Dosage: UNK, BID
     Route: 048
  14. SYNJARDY [Concomitant]
     Active Substance: EMPAGLIFLOZIN\METFORMIN HYDROCHLORIDE
     Dosage: UNK, BID, (1 TABLET)
     Route: 048
     Dates: start: 20230103
  15. SYNJARDY [Concomitant]
     Active Substance: EMPAGLIFLOZIN\METFORMIN HYDROCHLORIDE
     Dosage: UNK, BID, (1 TABLET)
     Route: 048
     Dates: start: 20240212
  16. XARELTO [Concomitant]
     Active Substance: RIVAROXABAN
     Dosage: 20 MILLIGRAM, QD
     Route: 048
  17. METOPROLOL SUCCINATE [Concomitant]
     Active Substance: METOPROLOL SUCCINATE
     Dosage: 100 MILLIGRAM, QD
     Route: 048
  18. LEVOTHYROXINE [Concomitant]
     Active Substance: LEVOTHYROXINE
     Dosage: 175 MICROGRAM, QD
     Route: 048
  19. LEVOTHYROXINE [Concomitant]
     Active Substance: LEVOTHYROXINE
     Dosage: 200 MICROGRAM, QD
     Route: 048
  20. AMLODIPINE [Concomitant]
     Active Substance: AMLODIPINE BESYLATE
     Dosage: 10 MILLIGRAM, QD
     Route: 048
  21. JANUVIA [Concomitant]
     Active Substance: SITAGLIPTIN PHOSPHATE
     Dosage: 100 MILLIGRAM, QD
     Route: 048
  22. AMARYL [Concomitant]
     Active Substance: GLIMEPIRIDE
     Dosage: 4 MILLIGRAM, QD
  23. METFORMIN [Concomitant]
     Active Substance: METFORMIN HYDROCHLORIDE
     Dosage: 1000 MILLIGRAM, BID
     Route: 048
     Dates: start: 10150202
  24. LEVOXYL [Concomitant]
     Active Substance: LEVOTHYROXINE SODIUM
     Dosage: 175 MICROGRAM, QD
     Route: 048
  25. SYNTHROID [Concomitant]
     Active Substance: LEVOTHYROXINE SODIUM
     Dosage: 150 MICROGRAM, QD
     Route: 048
  26. VITAMIN D3 [Concomitant]
     Active Substance: CHOLECALCIFEROL
     Dosage: UNK UNK, QD
     Route: 048
  27. TRELEGY ELLIPTA [Concomitant]
     Active Substance: FLUTICASONE FUROATE\UMECLIDINIUM BROMIDE\VILANTEROL TRIFENATATE
     Route: 065
  28. CARDIZEM [Concomitant]
     Active Substance: DILTIAZEM HYDROCHLORIDE
     Route: 065
  29. METOPROLOL [Concomitant]
     Active Substance: METOPROLOL
     Route: 065
  30. PRINIVIL [Concomitant]
     Active Substance: LISINOPRIL
     Dosage: 10 MILLIGRAM, QD
     Route: 048
  31. TOPROL XL [Concomitant]
     Active Substance: METOPROLOL SUCCINATE
     Dosage: 300 MILLIGRAM, QD
     Route: 048
     Dates: start: 20221119, end: 20221219
  32. ACETAMINOPHEN [Concomitant]
     Active Substance: ACETAMINOPHEN
     Route: 065
  33. ADVIL [Concomitant]
     Active Substance: IBUPROFEN
     Route: 048
  34. ETODOLAC [Concomitant]
     Active Substance: ETODOLAC
     Dosage: 500 MILLIGRAM, BID
     Route: 048
  35. DEPO-MEDROL [Concomitant]
     Active Substance: METHYLPREDNISOLONE ACETATE
     Route: 065
  36. OMNIPAQUE [Concomitant]
     Active Substance: IOHEXOL
     Route: 065
  37. SODIUM CHLORIDE [Concomitant]
     Active Substance: SODIUM CHLORIDE
     Route: 065
  38. GLIMEPIRIDE [Concomitant]
     Active Substance: GLIMEPIRIDE
     Dosage: 4 MILLIGRAM, QD
     Route: 048
     Dates: start: 20150202
  39. TIZANIDINE HYDROCHLORIDE [Concomitant]
     Active Substance: TIZANIDINE HYDROCHLORIDE
     Indication: Muscle spasms
     Dosage: 4 MILLIGRAM, Q8H
     Route: 048
  40. IBUPROFEN [Concomitant]
     Active Substance: IBUPROFEN
     Route: 065
  41. NAPROSYN [Concomitant]
     Active Substance: NAPROXEN
     Dosage: 500 MILLIGRAM, BID
     Route: 065
  42. KENALOG [Concomitant]
     Active Substance: TRIAMCINOLONE ACETONIDE
     Route: 035
  43. LIDOCAINE [Concomitant]
     Active Substance: LIDOCAINE
     Route: 035
  44. MARCAINE [Concomitant]
     Active Substance: BUPIVACAINE HYDROCHLORIDE
     Route: 035
  45. NORCO [Concomitant]
     Active Substance: ACETAMINOPHEN\HYDROCODONE BITARTRATE
     Route: 048
     Dates: start: 20150504
  46. TRIAMCINOLONE ACETONIDE [Concomitant]
     Active Substance: TRIAMCINOLONE ACETONIDE
     Route: 065

REACTIONS (52)
  - Deafness neurosensory [Unknown]
  - Disability [Unknown]
  - Mastoiditis [Unknown]
  - Physical disability [Unknown]
  - Atrial fibrillation [Unknown]
  - Emotional distress [Unknown]
  - Economic problem [Unknown]
  - Impaired quality of life [Unknown]
  - Concomitant disease aggravated [Unknown]
  - Deformity [Unknown]
  - Anxiety [Unknown]
  - Discomfort [Unknown]
  - Pain [Unknown]
  - Injury [Unknown]
  - Product quality issue [Unknown]
  - Sinusitis [Unknown]
  - Balance disorder [Unknown]
  - Abdominal distension [Unknown]
  - Constipation [Unknown]
  - Soft tissue swelling [Unknown]
  - Pulmonary mass [Unknown]
  - Dyspnoea [Unknown]
  - Appetite disorder [Unknown]
  - Temperature intolerance [Unknown]
  - Hyperhidrosis [Unknown]
  - Muscular weakness [Unknown]
  - Splenic granuloma [Unknown]
  - Abdominal pain [Unknown]
  - Chronic obstructive pulmonary disease [Unknown]
  - Hypogonadism [Unknown]
  - Dyspnoea [Unknown]
  - Ligament sprain [Unknown]
  - Repetitive strain injury [Unknown]
  - Joint injury [Unknown]
  - White blood cell count increased [Unknown]
  - Mean cell volume increased [Unknown]
  - Hypoaesthesia [Unknown]
  - Lymphadenitis [Unknown]
  - Paraesthesia [Unknown]
  - Rotator cuff syndrome [Unknown]
  - Failed back surgery syndrome [Unknown]
  - Intervertebral disc degeneration [Unknown]
  - Limb injury [Unknown]
  - Blood calcium decreased [Unknown]
  - Ear discomfort [Unknown]
  - Weight decreased [Unknown]
  - Tinnitus [Unknown]
  - Headache [Unknown]
  - Muscle spasms [Unknown]
  - Blood glucose increased [Unknown]
  - Nausea [Unknown]
  - Fatigue [Unknown]

NARRATIVE: CASE EVENT DATE: 20150128
